FAERS Safety Report 10035020 (Version 1)
Quarter: 2014Q1

REPORT INFORMATION
  Report Type: Spontaneous
  Country: US (occurrence: None)
  Receive Date: 20140306
  Receipt Date: 20140306
  Transmission Date: 20141002
  Serious: Yes (Other)
  Sender: FDA-Public Use
  Company Number: 163-21880-13011826

PATIENT
  Age: 83 Year
  Sex: Female
  Weight: 63.5 kg

DRUGS (4)
  1. REVLIMID (LENALIDOMIDE) (10 MILLIGRAM, CAPSULES) [Suspect]
     Indication: MYELODYSPLASTIC SYNDROME
     Route: 048
     Dates: start: 20120516
  2. LOSARTAN [Concomitant]
  3. LEVOTHYROXINE [Concomitant]
  4. HYDROCODONE/APAP [Concomitant]

REACTIONS (6)
  - Haematemesis [None]
  - Flushing [None]
  - Insomnia [None]
  - Diarrhoea [None]
  - Muscle spasms [None]
  - Nausea [None]
